FAERS Safety Report 10518326 (Version 5)
Quarter: 2014Q4

REPORT INFORMATION
  Report Type: Spontaneous
  Country: IT (occurrence: IT)
  Receive Date: 20141015
  Receipt Date: 20141127
  Transmission Date: 20150528
  Serious: Yes (Hospitalization, Other)
  Sender: FDA-Public Use
  Company Number: IT-AUROBINDO-AUR-APL-2014-10817

PATIENT
  Age: 79 Year
  Sex: Female

DRUGS (12)
  1. LANOXIN [Suspect]
     Active Substance: DIGOXIN
     Indication: ATRIAL FIBRILLATION
     Dosage: 0.5MG/2ML, DAILY
     Route: 042
     Dates: start: 20141001, end: 20141001
  2. KEPPRA [Suspect]
     Active Substance: LEVETIRACETAM
     Indication: POST-TRAUMATIC EPILEPSY
     Dosage: 2 DF, DAILY
     Route: 048
  3. LANSOX [Suspect]
     Active Substance: LANSOPRAZOLE
     Indication: GASTRITIS
     Dosage: 30 MG, DAILY
     Route: 048
  4. LANOXIN [Interacting]
     Active Substance: DIGOXIN
     Indication: CARDIOMYOPATHY
     Dosage: 1 DF, DAILY
     Route: 048
  5. TRIATEC                            /00885601/ [Interacting]
     Active Substance: RAMIPRIL
     Indication: HYPERTENSION
     Dosage: 2.5 MG, DAILY
     Route: 048
  6. SEREUPIN [Suspect]
     Active Substance: PAROXETINE HYDROCHLORIDE
     Indication: ADJUSTMENT DISORDER WITH DEPRESSED MOOD
     Dosage: 1 DF, DAILY
     Route: 048
  7. DIAMICRON [Suspect]
     Active Substance: GLICLAZIDE
     Indication: DIABETES MELLITUS
     Dosage: 1 DF, DAILY
     Route: 048
     Dates: start: 201404
  8. LASIX [Suspect]
     Active Substance: FUROSEMIDE
     Indication: GASTRITIS
  9. LANOXIN [Suspect]
     Active Substance: DIGOXIN
     Indication: CARDIOMYOPATHY
  10. BISOPROLOL 2.5 MG [Suspect]
     Active Substance: BISOPROLOL
     Indication: ATRIAL FIBRILLATION
     Dosage: 2.5 MG, DAILY
     Route: 048
  11. LASIX [Suspect]
     Active Substance: FUROSEMIDE
     Indication: CARDIAC DISORDER
     Dosage: 1 DF, DAILY
     Route: 048
  12. TRITTICO [Suspect]
     Active Substance: TRAZODONE HYDROCHLORIDE
     Indication: COGNITIVE DISORDER
     Dosage: 15 GTT, DAILY
     Route: 048

REACTIONS (11)
  - Fatigue [Recovered/Resolved]
  - Fatigue [Recovered/Resolved]
  - Atrial fibrillation [Recovered/Resolved]
  - Drug interaction [Recovered/Resolved]
  - Diabetic metabolic decompensation [Recovered/Resolved]
  - Malaise [Recovered/Resolved]
  - Cardioactive drug level increased [Recovered/Resolved]
  - Overdose [Recovering/Resolving]
  - Bradyphrenia [Recovered/Resolved]
  - Off label use [Recovered/Resolved]
  - Medication error [Recovered/Resolved]

NARRATIVE: CASE EVENT DATE: 20141001
